FAERS Safety Report 8825265 (Version 4)
Quarter: 2013Q1

REPORT INFORMATION
  Report Type: Spontaneous
  Country: US (occurrence: US)
  Receive Date: 20121004
  Receipt Date: 20130311
  Transmission Date: 20140127
  Serious: Yes (Hospitalization, Disabling, Other)
  Sender: FDA-Public Use
  Company Number: US-009507513-1207USA00060

PATIENT
  Sex: Female
  Weight: 64.4 kg

DRUGS (13)
  1. FOSAMAX [Suspect]
     Indication: OSTEOPOROSIS PROPHYLAXIS
     Dosage: 70 MG, UNK
     Route: 048
     Dates: start: 2006
  2. FOSAMAX [Suspect]
     Indication: OSTEOPOROSIS
  3. FOSAMAX [Suspect]
     Indication: OSTEOPOROSIS PROPHYLAXIS
     Dosage: 70 MG, UNK
     Route: 048
     Dates: start: 200808
  4. FOSAMAX [Suspect]
     Indication: OSTEOPOROSIS
  5. FOSAMAX PLUS D [Suspect]
     Indication: OSTEOPOROSIS
     Dosage: UNK
     Route: 048
     Dates: start: 200601, end: 20071203
  6. FOSAMAX PLUS D [Suspect]
     Indication: OSTEOARTHRITIS
  7. ACTONEL [Suspect]
     Indication: OSTEOPOROSIS PROPHYLAXIS
     Dosage: UNK
     Route: 048
     Dates: start: 20080214
  8. ACTONEL [Suspect]
     Indication: OSTEOPOROSIS
  9. ESTROGENS (UNSPECIFIED) [Concomitant]
     Indication: OESTROGEN THERAPY
     Dosage: UNK
     Dates: start: 1993
  10. LIPITOR [Concomitant]
     Indication: BLOOD CHOLESTEROL INCREASED
     Dosage: UNK
     Dates: start: 1993
  11. IMITREX (SUMATRIPTAN) [Concomitant]
     Indication: MIGRAINE
     Dosage: UNK
     Dates: start: 2005
  12. CALCIUM (UNSPECIFIED) (+) VITAMIN D (UNSPECIFIED) [Concomitant]
     Dosage: 1200 MG, UNK
     Dates: start: 1997
  13. HYDROCODONE [Concomitant]
     Indication: PAIN
     Dosage: UNK
     Dates: start: 1993

REACTIONS (41)
  - Femur fracture [Unknown]
  - Open reduction of fracture [Unknown]
  - Anaemia postoperative [Recovered/Resolved]
  - Blood pressure increased [Recovering/Resolving]
  - Low turnover osteopathy [Unknown]
  - Osteoporosis [Unknown]
  - Depression [Recovered/Resolved]
  - Anxiety [Recovered/Resolved]
  - Irritable bowel syndrome [Unknown]
  - Adverse event [Unknown]
  - Rheumatoid arthritis [Unknown]
  - Pain [Not Recovered/Not Resolved]
  - Drug dependence [Unknown]
  - Drug tolerance [Unknown]
  - Astigmatism [Unknown]
  - Hypermetropia [Unknown]
  - Presbyopia [Unknown]
  - Pterygium [Unknown]
  - Spinal compression fracture [Unknown]
  - Scoliosis [Unknown]
  - Hypokalaemia [Recovered/Resolved]
  - Clavicle fracture [Unknown]
  - Cough [Unknown]
  - Urge incontinence [Unknown]
  - Fatigue [Unknown]
  - Rosacea [Unknown]
  - Osteopenia [Unknown]
  - Depressive symptom [Unknown]
  - Fall [Unknown]
  - Gait disturbance [Unknown]
  - Fall [Unknown]
  - Hypertonic bladder [Unknown]
  - Calcium deficiency [Unknown]
  - Vitamin D deficiency [Unknown]
  - Anxiety [Unknown]
  - Constipation [Not Recovered/Not Resolved]
  - Off label use [Unknown]
  - Musculoskeletal pain [Unknown]
  - Oedema peripheral [Unknown]
  - Neck pain [Not Recovered/Not Resolved]
  - Back pain [Not Recovered/Not Resolved]
